FAERS Safety Report 4795280-7 (Version None)
Quarter: 2005Q4

REPORT INFORMATION
  Report Type: 
  Country: None (occurrence: None)
  Receive Date: 20051006
  Receipt Date: 20050921
  Transmission Date: 20060501
  Serious: Yes (Other)
  Sender: FDA-Public Use
  Company Number: FR-2005-019519

PATIENT
  Age: 23 Year
  Sex: Female

DRUGS (1)
  1. DROSPIRENONE + ETHINYL ESTRADIOL [Suspect]
     Indication: ORAL CONTRACEPTION
     Dosage: 1 TAB (S), 21D/28D, ORAL
     Route: 048
     Dates: start: 20030201

REACTIONS (4)
  - BLOOD ALDOSTERONE INCREASED [None]
  - CELLULITIS [None]
  - RENIN INCREASED [None]
  - URINE OUTPUT DECREASED [None]
